FAERS Safety Report 10952053 (Version 1)
Quarter: 2015Q1

REPORT INFORMATION
  Report Type: Spontaneous
  Country: US (occurrence: None)
  Receive Date: 20150324
  Receipt Date: 20150324
  Transmission Date: 20150721
  Serious: Yes (Death)
  Sender: FDA-Public Use
  Company Number: None

PATIENT
  Age: 74 Year
  Sex: Female

DRUGS (11)
  1. OMEPRAZOLE. [Concomitant]
     Active Substance: OMEPRAZOLE
  2. DEXAMETHASONE. [Concomitant]
     Active Substance: DEXAMETHASONE
  3. NITROFURANTOIN. [Concomitant]
     Active Substance: NITROFURANTOIN
  4. REVLIMID [Suspect]
     Active Substance: LENALIDOMIDE
     Indication: AMYLOIDOSIS
     Dosage: 10MG, QD X21D.THEN OFF, ORAL
     Route: 048
     Dates: start: 201307, end: 201311
  5. LASIX [Concomitant]
     Active Substance: FUROSEMIDE
  6. CYPROHEPTADINE. [Concomitant]
     Active Substance: CYPROHEPTADINE
  7. CARVEDILOL. [Concomitant]
     Active Substance: CARVEDILOL
  8. WARFARIN [Concomitant]
     Active Substance: WARFARIN
  9. K-TAB [Concomitant]
     Active Substance: POTASSIUM CHLORIDE
  10. DIGOXIN. [Concomitant]
     Active Substance: DIGOXIN
  11. LEVOTHYROXINE [Concomitant]
     Active Substance: LEVOTHYROXINE

REACTIONS (3)
  - Activities of daily living impaired [None]
  - Toxicity to various agents [None]
  - Fatigue [None]

NARRATIVE: CASE EVENT DATE: 20140107
